FAERS Safety Report 24107909 (Version 1)
Quarter: 2024Q3

REPORT INFORMATION
  Report Type: Spontaneous
  Country: JP (occurrence: JP)
  Receive Date: 20240718
  Receipt Date: 20240718
  Transmission Date: 20241017
  Serious: Yes (Hospitalization, Other)
  Sender: CELLTRION
  Company Number: JP-CELLTRION INC.-2024JP016985

PATIENT

DRUGS (5)
  1. TRASTUZUMAB [Suspect]
     Active Substance: TRASTUZUMAB
     Indication: HER2 positive breast cancer
     Dosage: NEOADJUVANT THERAPY(NAC) WITH TCHBHP (DOCETAXEL+CARBOPLATIN+TRASTUZUMAB+PERTUZUMAB)
  2. TRASTUZUMAB [Suspect]
     Active Substance: TRASTUZUMAB
     Dosage: POST OP THERAPY(POST LEFT PAPARTIAL MASTECTOMY AND AXILLARY LYMPH NODE DISSECTION) WITH PERTUZUMAB A
  3. DOCETAXEL [Suspect]
     Active Substance: DOCETAXEL\DOCETAXEL ANHYDROUS
     Indication: HER2 positive breast cancer
     Dosage: NEOADJUVANT THERAPY(NAC) WITH TCHBHP (DOCETAXEL+CARBOPLATIN+TRASTUZUMAB+PERTUZUMAB)
  4. CARBOPLATIN [Suspect]
     Active Substance: CARBOPLATIN
     Indication: HER2 positive breast cancer
     Dosage: NEOADJUVANT THERAPY(NAC) WITH TCHBHP (DOCETAXEL+CARBOPLATIN+TRASTUZUMAB+PERTUZUMAB)
  5. PERTUZUMAB [Suspect]
     Active Substance: PERTUZUMAB
     Indication: HER2 positive breast cancer
     Dosage: NEOADJUVANT THERAPY(NAC) WITH TCHBHP (DOCETAXEL+CARBOPLATIN+TRASTUZUMAB+PERTUZUMAB)

REACTIONS (5)
  - Behcet^s syndrome [Recovered/Resolved]
  - Stress [Recovered/Resolved]
  - Stomatitis [Recovered/Resolved]
  - Fatigue [Recovered/Resolved]
  - Decreased appetite [Recovered/Resolved]
